FAERS Safety Report 8392022-3 (Version None)
Quarter: 2012Q2

REPORT INFORMATION
  Report Type: 
  Country: None (occurrence: None)
  Receive Date: 20120529
  Receipt Date: 20120522
  Transmission Date: 20120825
  Serious: Yes (Death, Hospitalization, Other)
  Sender: FDA-Public Use
  Company Number: US-BAYER-200940580NA

PATIENT
  Age: 55 Year
  Sex: Male
  Weight: 73 kg

DRUGS (23)
  1. AMIODARONE HCL [Concomitant]
  2. PROTAMINE SULFATE [Concomitant]
     Dosage: 50 MG, UNK
     Route: 042
     Dates: start: 20070216
  3. MAXZIDE [Concomitant]
     Dosage: 50 MG, ONCE
     Route: 048
  4. BACTROBAN [Concomitant]
  5. TRASYLOL [Suspect]
     Indication: AORTIC VALVE REPLACEMENT
     Dosage: 50CC/HOUR; 300CC PER PERFUSION, 200 CC LOADING DOSE
     Route: 042
     Dates: start: 20070216, end: 20070216
  6. HEPARIN [Concomitant]
     Dosage: 65000 U, UNK
     Route: 042
     Dates: start: 20070216
  7. LASIX [Concomitant]
     Dosage: 40 MG, UNK
     Route: 042
     Dates: start: 20070216
  8. RED BLOOD CELLS [Concomitant]
     Dosage: 600 ML, UNK
     Dates: start: 20070216
  9. PLASMA [Concomitant]
     Dosage: 4 U, UNK
  10. RESTORIL [Concomitant]
  11. AMIODARONE HCL [Concomitant]
     Dosage: UNK
     Route: 042
     Dates: start: 20070216
  12. PHENYLEPHRINE HCL [Concomitant]
     Dosage: UNK
     Route: 042
     Dates: start: 20070216
  13. DIOVAN [Concomitant]
     Dosage: 160 MG, BID
     Route: 048
  14. MIDAZOLAM [Concomitant]
     Dosage: UNK
     Dates: start: 20070216
  15. DOPAMINE HYDROCHLORIDE [Concomitant]
     Dosage: UNK
     Route: 042
     Dates: start: 20070216
  16. PLATELETS [Concomitant]
     Dosage: 2 U, UNK
  17. ANCEF [Concomitant]
     Dosage: 1 G, UNK
     Dates: start: 20070216
  18. TRASYLOL [Suspect]
     Indication: AORTIC SURGERY
  19. NITROGLYCERIN [Concomitant]
     Dosage: UNK
     Route: 042
     Dates: start: 20070216
  20. LEVOPHED [Concomitant]
     Dosage: UNK
     Route: 042
     Dates: start: 20070216
  21. EPINEPHRINE [Concomitant]
     Dosage: UNK
     Route: 042
     Dates: start: 20070216
  22. INSULIN [Concomitant]
     Dosage: UNK
     Route: 042
     Dates: start: 20070216
  23. MILRINONE [Concomitant]
     Dosage: UNK
     Dates: start: 20070216

REACTIONS (13)
  - DEATH [None]
  - STRESS [None]
  - MULTI-ORGAN FAILURE [None]
  - PAIN [None]
  - RENAL IMPAIRMENT [None]
  - UNEVALUABLE EVENT [None]
  - RENAL FAILURE [None]
  - FEAR [None]
  - ANHEDONIA [None]
  - RENAL INJURY [None]
  - EMOTIONAL DISTRESS [None]
  - INJURY [None]
  - ANXIETY [None]
